FAERS Safety Report 8305623-5 (Version None)
Quarter: 2012Q2

REPORT INFORMATION
  Report Type: 
  Country: None (occurrence: None)
  Receive Date: 20120423
  Receipt Date: 20120410
  Transmission Date: 20120825
  Serious: Yes (Hospitalization)
  Sender: FDA-Public Use
  Company Number: JP-JNJFOC-20120109263

PATIENT
  Age: 13 Year
  Sex: Female
  Weight: 43 kg

DRUGS (12)
  1. REMICADE [Suspect]
     Route: 042
     Dates: start: 20110324
  2. PENTASA [Concomitant]
     Route: 048
     Dates: start: 20110409
  3. ALFAROL [Concomitant]
     Indication: OSTEOPOROSIS PROPHYLAXIS
     Route: 048
     Dates: start: 20110210
  4. SULFASALAZINE [Concomitant]
     Indication: COLITIS ULCERATIVE
     Route: 048
     Dates: start: 20110221, end: 20110328
  5. ADRENOCORTICAL HORMONE [Concomitant]
     Indication: COLITIS ULCERATIVE
  6. REMICADE [Suspect]
     Route: 042
     Dates: start: 20110615
  7. POSTERISAN [Concomitant]
     Indication: HAEMORRHOIDS
     Route: 054
     Dates: start: 20110210, end: 20110328
  8. PENTASA [Concomitant]
     Indication: COLITIS ULCERATIVE
     Route: 048
     Dates: start: 20110329, end: 20110408
  9. REMICADE [Suspect]
     Route: 042
     Dates: start: 20110310
  10. REMICADE [Suspect]
     Indication: COLITIS ULCERATIVE
     Route: 042
     Dates: start: 20110423
  11. LAC-B [Concomitant]
     Indication: COLITIS ULCERATIVE
     Route: 048
     Dates: start: 20110209
  12. THIATON [Concomitant]
     Indication: ABDOMINAL PAIN
     Route: 048
     Dates: start: 20110329, end: 20110423

REACTIONS (1)
  - PANCREATITIS [None]
